FAERS Safety Report 14869880 (Version 2)
Quarter: 2018Q2

REPORT INFORMATION
  Report Type: Report from Study
  Country: US (occurrence: AR)
  Receive Date: 20180509
  Receipt Date: 20180521
  Transmission Date: 20180711
  Serious: Yes (Death, Hospitalization, Other)
  Sender: FDA-Public Use
  Company Number: US-SUNOVION-2018SUN001861

PATIENT
  Age: 82 Year
  Sex: Male

DRUGS (1)
  1. GLYCOPYRROLATE. [Suspect]
     Active Substance: GLYCOPYRROLATE
     Indication: CHRONIC OBSTRUCTIVE PULMONARY DISEASE
     Dosage: UNK
     Route: 065

REACTIONS (11)
  - Choking [Fatal]
  - Syncope [Unknown]
  - Femur fracture [Unknown]
  - Condition aggravated [Fatal]
  - Cardiac arrest [Fatal]
  - Pneumonia aspiration [Fatal]
  - Fall [Unknown]
  - Lung neoplasm malignant [Unknown]
  - Dysphagia [Fatal]
  - Aspiration [Fatal]
  - Cough [Fatal]

NARRATIVE: CASE EVENT DATE: 201612
